FAERS Safety Report 4920779-X (Version None)
Quarter: 2006Q1

REPORT INFORMATION
  Report Type: 
  Country: None (occurrence: None)
  Receive Date: 20060216
  Receipt Date: 20060206
  Transmission Date: 20060701
  Serious: Yes (Other)
  Sender: FDA-Public Use
  Company Number: 2006015676

PATIENT
  Sex: Male
  Weight: 60 kg

DRUGS (2)
  1. SOLU-MEDROL [Suspect]
     Indication: BRAIN STEM INFARCTION
     Dosage: 1.8 GRAM (1.8 GRAM, 1 IN 1 D), INTRAVENOUS
     Route: 042
     Dates: start: 20060127, end: 20060127
  2. PANTOPRAZOLE SODIUM [Concomitant]

REACTIONS (1)
  - UPPER GASTROINTESTINAL HAEMORRHAGE [None]
